FAERS Safety Report 16267906 (Version 4)
Quarter: 2019Q4

REPORT INFORMATION
  Report Type: Report from Study
  Country: NZ (occurrence: NZ)
  Receive Date: 20190503
  Receipt Date: 20191217
  Transmission Date: 20200122
  Serious: No
  Sender: FDA-Public Use
  Company Number: NZ-ROCHE-2308722

PATIENT
  Age: 53 Year
  Sex: Male
  Weight: 75 kg

DRUGS (13)
  1. RANITIDINE. [Concomitant]
     Active Substance: RANITIDINE
     Route: 065
     Dates: start: 20190507, end: 20190507
  2. PARACETAMOL [Concomitant]
     Active Substance: ACETAMINOPHEN
     Indication: PREMEDICATION
     Route: 065
     Dates: start: 20190416, end: 20190416
  3. HEMP [Concomitant]
     Active Substance: HEMP
     Route: 065
     Dates: start: 20190312, end: 20190322
  4. PARACETAMOL [Concomitant]
     Active Substance: ACETAMINOPHEN
     Route: 065
     Dates: start: 20190507, end: 20190507
  5. RO6874281 (FAP IL2V MAB) [Suspect]
     Active Substance: SIMLUKAFUSP ALFA
     Indication: METASTATIC NEOPLASM
     Dosage: DATE OF LAST DOSE OF RO6874281 (FAP IL2V MAB) PRIOR TO EVENT ONSET: 16/APR/2019
     Route: 042
     Dates: start: 20190416
  6. DICLOFENAC [Concomitant]
     Active Substance: DICLOFENAC
     Route: 065
     Dates: start: 20190507, end: 20190507
  7. ONDASETRON [ONDANSETRON] [Concomitant]
     Indication: PREMEDICATION
     Route: 065
     Dates: start: 20190416, end: 20190416
  8. ONDASETRON [ONDANSETRON] [Concomitant]
     Route: 065
     Dates: start: 20190507, end: 20190507
  9. DICLOFENAC [Concomitant]
     Active Substance: DICLOFENAC
     Indication: PREMEDICATION
     Route: 065
     Dates: start: 20190416, end: 20190416
  10. CHLORPHENAMINE [Concomitant]
     Active Substance: CHLORPHENIRAMINE MALEATE
     Indication: PREMEDICATION
     Route: 065
     Dates: start: 20190416, end: 20190416
  11. CHLORPHENAMINE [Concomitant]
     Active Substance: CHLORPHENIRAMINE MALEATE
     Route: 065
     Dates: start: 20190507, end: 20190507
  12. ATEZOLIZUMAB. [Suspect]
     Active Substance: ATEZOLIZUMAB
     Indication: METASTATIC NEOPLASM
     Dosage: DATE OF LAST DOSE OF ATEZOLIZUMAB PRIOR TO EVENT ONSET: 16/APR/2019
     Route: 042
     Dates: start: 20190416
  13. RANITIDINE. [Concomitant]
     Active Substance: RANITIDINE
     Indication: PREMEDICATION
     Route: 065
     Dates: start: 20190416, end: 20190416

REACTIONS (3)
  - Blood bilirubin abnormal [Not Recovered/Not Resolved]
  - Liver injury [Recovered/Resolved]
  - Alanine aminotransferase abnormal [Not Recovered/Not Resolved]

NARRATIVE: CASE EVENT DATE: 20190417
